FAERS Safety Report 7101944-2 (Version None)
Quarter: 2010Q4

REPORT INFORMATION
  Report Type: 
  Country: None (occurrence: None)
  Receive Date: 20101115
  Receipt Date: 20101105
  Transmission Date: 20110411
  Serious: Yes (Other)
  Sender: FDA-Public Use
  Company Number: BE-MPIJNJ-2010-02988

PATIENT

DRUGS (1)
  1. VELCADE [Suspect]
     Indication: MULTIPLE MYELOMA
     Dosage: 1.3 MG/M2, UNK

REACTIONS (3)
  - ACCIDENTAL OVERDOSE [None]
  - POLYNEUROPATHY [None]
  - THROMBOCYTOPENIA [None]
